FAERS Safety Report 6218991-5 (Version None)
Quarter: 2009Q2

REPORT INFORMATION
  Report Type: 
  Country: None (occurrence: None)
  Receive Date: 20090608
  Receipt Date: 20090604
  Transmission Date: 20091009
  Serious: Yes (Death, Hospitalization, Other)
  Sender: FDA-Public Use
  Company Number: PHHY2009GB21942

PATIENT
  Sex: Female

DRUGS (5)
  1. DICLOFENAC SODIUM [Suspect]
     Indication: ARTHRALGIA
     Dosage: 2 DF, UNK
  2. NITROGLYCERIN [Suspect]
     Indication: ANGINA PECTORIS
  3. ALBUTEROL [Concomitant]
  4. RAMIPRIL [Concomitant]
  5. PARACETAMOL [Concomitant]

REACTIONS (8)
  - ABDOMINAL PAIN [None]
  - ANAPHYLACTIC REACTION [None]
  - CARDIAC ARREST [None]
  - COLITIS ISCHAEMIC [None]
  - DIARRHOEA [None]
  - DYSPNOEA [None]
  - LOSS OF CONSCIOUSNESS [None]
  - PRURITUS [None]
